FAERS Safety Report 6533088-2 (Version None)
Quarter: 2010Q1

REPORT INFORMATION
  Report Type: 
  Country: None (occurrence: None)
  Receive Date: 20100111
  Receipt Date: 20100105
  Transmission Date: 20100710
  Serious: Yes (Other)
  Sender: FDA-Public Use
  Company Number: DE-AMGEN-US384350

PATIENT
  Sex: Male

DRUGS (3)
  1. ENBREL [Suspect]
     Indication: DRUG USE FOR UNKNOWN INDICATION
     Route: 058
  2. ENBREL [Suspect]
     Route: 058
  3. ACETYLSALICYLIC ACID [Concomitant]

REACTIONS (3)
  - CORONARY ARTERY STENOSIS [None]
  - DRUG EFFECT DECREASED [None]
  - MACULAR OEDEMA [None]
